FAERS Safety Report 8818406 (Version 2)
Quarter: 2012Q4

REPORT INFORMATION
  Report Type: 
  Country: JP (occurrence: JP)
  Receive Date: 20121001
  Receipt Date: 20121004
  Transmission Date: 20130627
  Serious: Yes (Other)
  Sender: FDA-Public Use
  Company Number: JP-ROCHE-1136318

PATIENT
  Age: 77 Year
  Sex: Male

DRUGS (5)
  1. AVASTIN [Suspect]
     Indication: RECTAL CANCER RECURRENT
     Dosage: Dosage is uncertain.
     Route: 041
  2. ELPLAT [Concomitant]
     Indication: RECTAL CANCER RECURRENT
     Dosage: Dosage is uncertain.
     Route: 041
  3. 5-FU [Concomitant]
     Indication: RECTAL CANCER RECURRENT
     Dosage: Dosage is uncertain.
     Route: 040
  4. 5-FU [Concomitant]
     Indication: RECTAL CANCER RECURRENT
     Dosage: Dosage is uncertain.
     Route: 041
  5. CALCIUM LEVOFOLINATE [Concomitant]
     Indication: RECTAL CANCER RECURRENT
     Dosage: Dosage is uncertain.
     Route: 041

REACTIONS (4)
  - Internal hernia [Unknown]
  - Ileus [Unknown]
  - Gastrointestinal necrosis [Unknown]
  - Gastrointestinal perforation [Unknown]
